FAERS Safety Report 9265733 (Version 1)
Quarter: 2013Q2

REPORT INFORMATION
  Report Type: Report from Study
  Country: IL (occurrence: IL)
  Receive Date: 20130501
  Receipt Date: 20130501
  Transmission Date: 20140414
  Serious: Yes (Death)
  Sender: FDA-Public Use
  Company Number: IL-BAXTER-2013BAX015494

PATIENT
  Age: 69 Year
  Sex: Male
  Weight: 101 kg

DRUGS (5)
  1. ENDOXAN-1G [Suspect]
     Indication: CHRONIC LYMPHOCYTIC LEUKAEMIA
     Route: 042
     Dates: start: 20130311
  2. ENDOXAN-1G [Suspect]
     Route: 042
     Dates: start: 20130409
  3. FLUDARABINE [Suspect]
     Indication: CHRONIC LYMPHOCYTIC LEUKAEMIA
     Route: 042
     Dates: start: 20130311
  4. FLUDARABINE [Suspect]
     Route: 042
     Dates: start: 20130409
  5. CLONAZEPAM [Suspect]
     Indication: AGITATION
     Route: 065
     Dates: start: 20130407

REACTIONS (2)
  - Respiratory failure [Fatal]
  - Sepsis [Fatal]
